FAERS Safety Report 6383474-9 (Version None)
Quarter: 2009Q4

REPORT INFORMATION
  Report Type: 
  Country: None (occurrence: None)
  Receive Date: 20091001
  Receipt Date: 20090908
  Transmission Date: 20100525
  Serious: No
  Sender: FDA-Public Use
  Company Number: AU-ROCHE-655282

PATIENT
  Sex: Female

DRUGS (1)
  1. TAMIFLU [Suspect]
     Route: 065
     Dates: end: 20090908

REACTIONS (2)
  - NO ADVERSE EVENT [None]
  - PREGNANCY [None]
